FAERS Safety Report 9905623 (Version 4)
Quarter: 2015Q1

REPORT INFORMATION
  Report Type: Spontaneous
  Country: JP (occurrence: None)
  Receive Date: 20140211
  Receipt Date: 20150130
  Transmission Date: 20150721
  Serious: Yes (Life-Threatening)
  Sender: FDA-Public Use
  Company Number: ABR_01478_2014

PATIENT
  Age: 63 Year
  Sex: Male

DRUGS (1)
  1. GLIADEL [Suspect]
     Active Substance: CARMUSTINE
     Indication: MALIGNANT GLIOMA
     Dosage: 2 DF 1X, INTRACEREBRAL
     Dates: start: 20140114

REACTIONS (6)
  - Hemiplegia [None]
  - Paralysis [None]
  - Apparent life threatening event [None]
  - Vasospasm [None]
  - Implant site ischaemia [None]
  - Cerebral infarction [None]

NARRATIVE: CASE EVENT DATE: 20140128
